FAERS Safety Report 24316244 (Version 2)
Quarter: 2024Q3

REPORT INFORMATION
  Report Type: Report from Study
  Country: CA (occurrence: None)
  Receive Date: 20240913
  Receipt Date: 20240917
  Transmission Date: 20241017
  Serious: Yes (Other)
  Sender: ASTRAZENECA
  Company Number: 2024A147973

PATIENT
  Sex: Female

DRUGS (7)
  1. TEZSPIRE [Suspect]
     Active Substance: TEZEPELUMAB-EKKO
     Indication: Asthma
     Dosage: 210.0MG UNKNOWN
     Route: 058
     Dates: start: 20231012
  2. AA-SULFATRIM DS [Concomitant]
  3. VENTOLIN [Concomitant]
     Active Substance: ALBUTEROL SULFATE
  4. SOLU-MEDROL [Concomitant]
     Active Substance: METHYLPREDNISOLONE SODIUM SUCCINATE
  5. GLYCOPYRROLATE\INDACATEROL\MOMETASONE FUROATE [Concomitant]
     Active Substance: GLYCOPYRROLATE\INDACATEROL\MOMETASONE FUROATE
  6. PREDNISONE [Concomitant]
     Active Substance: PREDNISONE
  7. OXYGEN [Concomitant]
     Active Substance: OXYGEN

REACTIONS (6)
  - Pancreatic carcinoma [Unknown]
  - Ovarian cancer [Unknown]
  - Mass [Unknown]
  - Headache [Unknown]
  - Burning sensation [Unknown]
  - Radiation associated pain [Unknown]
